FAERS Safety Report 21297964 (Version 1)
Quarter: 2022Q3

REPORT INFORMATION
  Report Type: Spontaneous
  Country: PL (occurrence: PL)
  Receive Date: 20220906
  Receipt Date: 20220906
  Transmission Date: 20221026
  Serious: Yes (Hospitalization)
  Sender: FDA-Public Use
  Company Number: PL-GLAXOSMITHKLINE-PL2021GSK033557

PATIENT
  Age: 50 Year
  Sex: Female

DRUGS (11)
  1. POTASSIUM CHLORIDE [Suspect]
     Active Substance: POTASSIUM CHLORIDE
     Indication: Tibia fracture
     Dosage: UNK
     Route: 065
  2. SODIUM CHLORIDE [Suspect]
     Active Substance: SODIUM CHLORIDE
     Indication: Tibia fracture
     Dosage: UNK
     Route: 042
  3. CALCIUM CHLORIDE\MAGNESIUM CHLORIDE\POTASSIUM CHLORIDE\SODIUM ACETATE\ [Suspect]
     Active Substance: CALCIUM CHLORIDE\MAGNESIUM CHLORIDE\POTASSIUM CHLORIDE\SODIUM ACETATE\SODIUM CHLORIDE\SODIUM CITRATE
     Indication: Tibia fracture
     Dosage: UNK
     Route: 042
  4. ENOXAPARIN SODIUM [Suspect]
     Active Substance: ENOXAPARIN SODIUM
     Indication: Tibia fracture
     Dosage: UNK
     Route: 058
  5. METAMIZOLE SODIUM [Suspect]
     Active Substance: METAMIZOLE SODIUM
     Indication: Tibia fracture
     Dosage: UNK
     Route: 065
  6. PERFALGAN [Suspect]
     Active Substance: ACETAMINOPHEN
     Indication: Tibia fracture
     Dosage: UNK
     Route: 065
  7. HORSE CHESTNUT\RUTIN [Suspect]
     Active Substance: HORSE CHESTNUT\RUTIN
     Indication: Tibia fracture
     Dosage: UNK
     Route: 048
  8. TRAMADOL HYDROCHLORIDE [Suspect]
     Active Substance: TRAMADOL HYDROCHLORIDE
     Indication: Tibia fracture
     Dosage: UNK
     Route: 065
  9. LEFLUNOMID MEDAC (LEFLUNOMIDE) [Concomitant]
     Indication: Rheumatoid arthritis
     Dosage: 20 MG DAILY
     Route: 048
     Dates: start: 20200624, end: 20210304
  10. NIMESIL (NIMESULIDE) [Concomitant]
     Indication: Rheumatoid arthritis
     Dosage: 100 MG DAILY
     Route: 048
     Dates: start: 20201029
  11. NIMESIL (NIMESULIDE) [Concomitant]
     Dosage: 100 MG DAILY
     Route: 048
     Dates: start: 20190420, end: 20201025

REACTIONS (2)
  - Tibia fracture [Recovering/Resolving]
  - Post procedural complication [Not Recovered/Not Resolved]

NARRATIVE: CASE EVENT DATE: 20210206
